FAERS Safety Report 9416198 (Version 1)
Quarter: 2013Q3

REPORT INFORMATION
  Report Type: Spontaneous
  Country: PL (occurrence: None)
  Receive Date: 20130718
  Receipt Date: 20130718
  Transmission Date: 20140515
  Serious: Yes (Hospitalization, Other)
  Sender: FDA-Public Use
  Company Number: AUR-APL-2013-05997

PATIENT
  Age: 71 Year
  Sex: Female

DRUGS (5)
  1. LEVETIRACETAM (LEVETIRACETAM) [Suspect]
     Indication: CONVULSION
  2. VALPROATE [Suspect]
     Indication: CONVULSION PROPHYLAXIS
  3. BISOPROLOL FUMARATE (BISOPROLOL FUMARATE) [Concomitant]
  4. AMLODIPINE BESILATE (AMLODIPINE BESILATE) [Concomitant]
  5. SUNITINIB MALATE [Suspect]
     Indication: METASTATIC RENAL CELL CARCINOMA

REACTIONS (11)
  - Convulsion [None]
  - Aphasia [None]
  - Blood pressure increased [None]
  - Thrombocytopenia [None]
  - Hyponatraemia [None]
  - Aspartate aminotransferase increased [None]
  - Neutropenia [None]
  - Central nervous system lesion [None]
  - Neurological symptom [None]
  - Neurotoxicity [None]
  - Paradoxical drug reaction [None]
